FAERS Safety Report 18368365 (Version 2)
Quarter: 2020Q4

REPORT INFORMATION
  Report Type: Other
  Country: US (occurrence: US)
  Receive Date: 20201009
  Receipt Date: 20201104
  Transmission Date: 20210114
  Serious: Yes (Other)
  Sender: FDA-Public Use
  Company Number: US-AMAG PHARMACEUTICALS, INC.-AMAG202003374

PATIENT
  Age: 27 Year
  Sex: Female

DRUGS (1)
  1. MAKENA [Suspect]
     Active Substance: HYDROXYPROGESTERONE CAPROATE
     Indication: PREMATURE DELIVERY
     Route: 058
     Dates: start: 20200825, end: 20200825

REACTIONS (7)
  - Amniotic cavity infection [Recovered/Resolved]
  - Vaginal haemorrhage [Recovered/Resolved]
  - Induced labour [Recovered/Resolved]
  - Preterm premature rupture of membranes [Recovered/Resolved]
  - Therapy cessation [Unknown]
  - Premature delivery [Recovered/Resolved]
  - Sepsis [Unknown]

NARRATIVE: CASE EVENT DATE: 202009
